FAERS Safety Report 4704844-8 (Version None)
Quarter: 2005Q2

REPORT INFORMATION
  Report Type: 
  Country: None (occurrence: None)
  Receive Date: 20050629
  Receipt Date: 20050613
  Transmission Date: 20051028
  Serious: Yes (Hospitalization, Other)
  Sender: FDA-Public Use
  Company Number: 18972

PATIENT
  Age: 65 Year
  Sex: Male
  Weight: 100.2449 kg

DRUGS (1)
  1. DAUNORUBICIN HCL [Suspect]
     Indication: ACUTE MYELOID LEUKAEMIA
     Dosage: 45MG/M2 OTHER
     Dates: start: 20050502

REACTIONS (8)
  - ABDOMINAL PAIN [None]
  - ARRHYTHMIA SUPRAVENTRICULAR [None]
  - FATIGUE [None]
  - FEBRILE NEUTROPENIA [None]
  - HYPOTENSION [None]
  - PANCREATITIS [None]
  - PNEUMONITIS [None]
  - RENAL IMPAIRMENT [None]
